FAERS Safety Report 4724309-7 (Version None)
Quarter: 2005Q3

REPORT INFORMATION
  Report Type: 
  Country: None (occurrence: None)
  Receive Date: 20050722
  Receipt Date: 20050722
  Transmission Date: 20060218
  Serious: Yes (Life-Threatening, Other)
  Sender: FDA-Public Use
  Company Number: None

PATIENT
  Sex: Male
  Weight: 99 kg

DRUGS (6)
  1. REGLAN [Suspect]
     Indication: GASTROINTESTINAL MOTILITY DISORDER
     Dosage: 5 MG IV
     Route: 042
     Dates: start: 20050714, end: 20050715
  2. VANCOMYCIN [Concomitant]
  3. ZOSYN [Concomitant]
  4. BACITRACIN ZINC OINT [Concomitant]
  5. DOCUSATE SODIUM [Concomitant]
  6. SENNOSIDES [Concomitant]

REACTIONS (3)
  - BLOOD PRESSURE IMMEASURABLE [None]
  - CARDIAC ARREST [None]
  - INFUSION RELATED REACTION [None]
